FAERS Safety Report 7363488-2 (Version None)
Quarter: 2011Q1

REPORT INFORMATION
  Report Type: 
  Country: None (occurrence: None)
  Receive Date: 20110321
  Receipt Date: 20110221
  Transmission Date: 20110831
  Serious: No
  Sender: FDA-Public Use
  Company Number: US-B.I. PHARMACEUTICALS,INC./RIDGEFIELD-2011-BP-06464BP

PATIENT
  Sex: Male

DRUGS (10)
  1. DIOVAN [Concomitant]
     Indication: HYPERTENSION
     Dosage: 160 MG
  2. NORVASC [Concomitant]
     Indication: HYPERTENSION
     Dosage: 10 MG
  3. CHERRY FRUIT EXTRA [Concomitant]
     Indication: PROPHYLAXIS
  4. PRAVASTATIN [Concomitant]
     Indication: BLOOD CHOLESTEROL INCREASED
     Dosage: 20 MG
  5. NAPROXEN [Concomitant]
     Indication: ARTHRITIS
  6. PRADAXA [Suspect]
     Indication: THROMBOSIS
     Dosage: 300 MG
     Route: 048
     Dates: start: 20110201
  7. JANUVIA [Concomitant]
     Indication: DIABETES MELLITUS
     Dosage: 25 MG
  8. LASIX [Concomitant]
     Indication: JOINT SWELLING
     Dosage: 40 MG
  9. FLOMAX [Concomitant]
     Indication: PROSTATIC DISORDER
     Dosage: 0.4 MG
     Dates: start: 20050101
  10. TOPROL-XL [Concomitant]
     Indication: HYPERTENSION
     Dosage: 25 MG

REACTIONS (4)
  - ARTHRITIS [None]
  - DYSPEPSIA [None]
  - NAUSEA [None]
  - URINE ODOUR ABNORMAL [None]
